FAERS Safety Report 9861916 (Version 1)
Quarter: 2014Q1

REPORT INFORMATION
  Report Type: Spontaneous
  Country: US (occurrence: None)
  Receive Date: 20140131
  Receipt Date: 20140131
  Transmission Date: 20141002
  Serious: Yes (Other)
  Sender: FDA-Public Use
  Company Number: None

PATIENT
  Age: 37 Year
  Sex: Male

DRUGS (6)
  1. BUSPIRONE [Suspect]
     Route: 048
     Dates: start: 20141219, end: 20141226
  2. FLUOXETINE [Concomitant]
     Route: 048
     Dates: start: 201205
  3. NAPROXEN [Concomitant]
  4. CYCLOBENZAPRINE [Concomitant]
  5. HCTZ [Concomitant]
  6. HYDROCODONE/APAP [Concomitant]

REACTIONS (4)
  - Tremor [None]
  - Hyperhidrosis [None]
  - Palpitations [None]
  - Incorrect dose administered [None]
